FAERS Safety Report 14977023 (Version 3)
Quarter: 2018Q2

REPORT INFORMATION
  Report Type: Report from Study
  Country: None (occurrence: EC)
  Receive Date: 20180605
  Receipt Date: 20180626
  Transmission Date: 20180711
  Serious: Yes (Other)
  Sender: FDA-Public Use
  Company Number: EC-ABBVIE-18K-047-2377976-00

PATIENT
  Age: 57 Year
  Sex: Male
  Weight: 50 kg

DRUGS (1)
  1. HUMIRA [Suspect]
     Active Substance: ADALIMUMAB
     Indication: PSORIATIC ARTHROPATHY
     Route: 058
     Dates: start: 20141113

REACTIONS (3)
  - Abdominal pain [Unknown]
  - Dysuria [Unknown]
  - Blood urine present [Unknown]

NARRATIVE: CASE EVENT DATE: 20180601
